FAERS Safety Report 7228092-5 (Version None)
Quarter: 2011Q1

REPORT INFORMATION
  Report Type: 
  Country: None (occurrence: None)
  Receive Date: 20110106
  Receipt Date: 20101227
  Transmission Date: 20110831
  Serious: Yes (Hospitalization, Other)
  Sender: FDA-Public Use
  Company Number: TPA2010A06251

PATIENT
  Age: 42 Year
  Sex: Female
  Weight: 69.8539 kg

DRUGS (5)
  1. DEXILANT (DEXLANSOPRAZOLE) [Suspect]
     Indication: GASTROOESOPHAGEAL REFLUX DISEASE
     Dosage: 60 MG, 1 IN 1 D, PER ORAL
     Route: 048
     Dates: start: 20101027, end: 20101031
  2. GLIMEPIRIDE [Concomitant]
  3. FLUOXETINE [Concomitant]
  4. PRAVASTATIN [Concomitant]
  5. SINGULAIR [Concomitant]

REACTIONS (1)
  - BRONCHOSPASM [None]
